FAERS Safety Report 14284821 (Version 6)
Quarter: 2019Q4

REPORT INFORMATION
  Report Type: Report from Study
  Country: BE (occurrence: BE)
  Receive Date: 20171214
  Receipt Date: 20191205
  Transmission Date: 20200122
  Serious: Yes (Hospitalization, Other)
  Sender: FDA-Public Use
  Company Number: PHHY2017BE181098

PATIENT
  Age: 56 Year
  Sex: Male

DRUGS (1)
  1. GILENYA [Suspect]
     Active Substance: FINGOLIMOD HYDROCHLORIDE
     Indication: MULTIPLE SCLEROSIS
     Dosage: UNK, QD
     Route: 048
     Dates: start: 20140526, end: 20141220

REACTIONS (10)
  - White blood cell count decreased [Unknown]
  - Malaise [Unknown]
  - Infection [Not Recovered/Not Resolved]
  - Influenza [Unknown]
  - Urinary tract infection [Recovered/Resolved]
  - Hyperthyroidism [Not Recovered/Not Resolved]
  - Lymphocyte count decreased [Unknown]
  - Humerus fracture [Recovered/Resolved]
  - Fall [Unknown]
  - Urinary tract infection [Recovered/Resolved]

NARRATIVE: CASE EVENT DATE: 20170807
